FAERS Safety Report 22213963 (Version 1)
Quarter: 2023Q2

REPORT INFORMATION
  Report Type: Spontaneous
  Country: US (occurrence: None)
  Receive Date: 20230414
  Receipt Date: 20230414
  Transmission Date: 20230721
  Serious: Yes (Hospitalization)
  Sender: FDA-Public Use
  Company Number: None

PATIENT
  Sex: Female

DRUGS (1)
  1. KESIMPTA [Suspect]
     Active Substance: OFATUMUMAB
     Indication: Multiple sclerosis
     Dosage: OTHER QUANTITY : 20 MG/0.4ML;?FREQUENCY : MONTHLY;?
     Route: 058
     Dates: start: 20220920

REACTIONS (4)
  - Insurance issue [None]
  - Multiple sclerosis [None]
  - Fall [None]
  - Therapy interrupted [None]
